FAERS Safety Report 10208748 (Version 1)
Quarter: 2014Q2

REPORT INFORMATION
  Report Type: Spontaneous
  Country: GR (occurrence: GR)
  Receive Date: 20140530
  Receipt Date: 20140530
  Transmission Date: 20141212
  Serious: Yes (Other)
  Sender: FDA-Public Use
  Company Number: GR-ELI_LILLY_AND_COMPANY-GR201405007431

PATIENT
  Age: 75 Year
  Sex: Female

DRUGS (6)
  1. FORSTEO [Suspect]
     Indication: OSTEOPOROSIS
     Dosage: 20 UG, QD
     Route: 058
     Dates: start: 201404
  2. LESCOL XL [Concomitant]
     Indication: HYPERCHOLESTEROLAEMIA
     Dosage: 80 MG, QD
     Route: 048
  3. TENORMIN [Concomitant]
     Indication: TACHYCARDIA
     Dosage: 25 MG, QD
     Route: 048
  4. TENORMIN [Concomitant]
     Indication: ARRHYTHMIA
  5. IDEOS [Concomitant]
     Indication: OSTEOPOROSIS
     Dosage: 500 MG, QD
     Route: 048
  6. REMINYL [Concomitant]
     Indication: PROPHYLAXIS
     Dosage: 8 MG, QD
     Route: 048

REACTIONS (1)
  - Rectal haemorrhage [Recovering/Resolving]
